FAERS Safety Report 6533078-X (Version None)
Quarter: 2010Q1

REPORT INFORMATION
  Report Type: 
  Country: None (occurrence: None)
  Receive Date: 20100111
  Receipt Date: 20100104
  Transmission Date: 20100710
  Serious: Yes (Death, Hospitalization)
  Sender: FDA-Public Use
  Company Number: ES-ELI_LILLY_AND_COMPANY-ES201001000328

PATIENT
  Age: 86 Year
  Sex: Female

DRUGS (4)
  1. FORTEO [Suspect]
     Indication: OSTEOPOROSIS
     Dosage: 20 UG, UNKNOWN
     Route: 058
     Dates: start: 20090501, end: 20091119
  2. FORTEO [Suspect]
     Dosage: 20 UG, UNK
     Route: 058
  3. SEGURIL [Concomitant]
     Indication: FLUID RETENTION
  4. MIRAPEX [Concomitant]
     Indication: PARKINSON'S DISEASE

REACTIONS (4)
  - CARDIAC VALVE DISEASE [None]
  - FLUID RETENTION [None]
  - GAIT DISTURBANCE [None]
  - HIP SURGERY [None]
